FAERS Safety Report 13678527 (Version 1)
Quarter: 2017Q2

REPORT INFORMATION
  Report Type: Spontaneous
  Country: AU (occurrence: AU)
  Receive Date: 20170622
  Receipt Date: 20170622
  Transmission Date: 20170830
  Serious: Yes (Other)
  Sender: FDA-Public Use
  Company Number: AU-ABBVIE-12P-008-0942221-00

PATIENT
  Sex: Male
  Weight: 81 kg

DRUGS (4)
  1. DUODOPA [Suspect]
     Active Substance: CARBIDOPA\LEVODOPA
     Indication: ON AND OFF PHENOMENON
     Route: 050
     Dates: start: 20120227
  2. DUODOPA [Suspect]
     Active Substance: CARBIDOPA\LEVODOPA
     Dosage: CONTIN 5MLS/HR, EXTRA DOSE 2.5MLS
     Route: 050
     Dates: start: 20120523
  3. DUODOPA [Suspect]
     Active Substance: CARBIDOPA\LEVODOPA
     Indication: PARKINSON^S DISEASE
     Dosage: NASOJEJUNAL, AM DOSE 10ML, CONTIN 3.1 ML
     Route: 050
     Dates: start: 20120222
  4. DUODOPA [Suspect]
     Active Substance: CARBIDOPA\LEVODOPA
     Dosage: MORNING DOSE 10MLS
     Route: 050
     Dates: start: 20120523

REACTIONS (2)
  - Visual impairment [Not Recovered/Not Resolved]
  - Glaucoma [Not Recovered/Not Resolved]
